FAERS Safety Report 20832920 (Version 1)
Quarter: 2022Q2

REPORT INFORMATION
  Report Type: Spontaneous
  Country: US (occurrence: US)
  Receive Date: 20220516
  Receipt Date: 20220516
  Transmission Date: 20220721
  Serious: No
  Sender: FDA-Public Use
  Company Number: US-TEVA-2022-US-2029937

PATIENT

DRUGS (2)
  1. MYCOPHENOLATE MOFETIL [Suspect]
     Active Substance: MYCOPHENOLATE MOFETIL
     Route: 065
  2. SIROLIMUS [Suspect]
     Active Substance: SIROLIMUS
     Route: 065

REACTIONS (3)
  - Drug effect less than expected [Unknown]
  - Weight decreased [Unknown]
  - Adverse event [Unknown]
